FAERS Safety Report 23464045 (Version 4)
Quarter: 2024Q1

REPORT INFORMATION
  Report Type: Report from Study
  Country: ES (occurrence: ES)
  Receive Date: 20240201
  Receipt Date: 20240226
  Transmission Date: 20240410
  Serious: Yes (Death, Life-Threatening, Hospitalization, Other)
  Sender: FDA-Public Use
  Company Number: ES-CELLTRION INC.-2024ES002018

PATIENT

DRUGS (13)
  1. RITUXIMAB [Suspect]
     Active Substance: RITUXIMAB
     Indication: Diffuse large B-cell lymphoma
     Dosage: 693.75 MG, EVERY 3 WEEKS
     Route: 042
     Dates: start: 20230526, end: 20231017
  2. EPCORITAMAB [Suspect]
     Active Substance: EPCORITAMAB
     Indication: Diffuse large B-cell lymphoma
     Dosage: 48 MG C1 (STEP-UP), CYCLES 2-4 (21-DAY CYCLE, WEEKLY DOSE) C5-C8 (21-DYS CYCLE, EVERY 3 WEEKS) PER P
     Route: 058
     Dates: start: 20230526, end: 20231017
  3. VINCRISTINE [Suspect]
     Active Substance: VINCRISTINE
     Indication: Diffuse large B-cell lymphoma
     Dosage: 2 MG, EVERY 3 WEEKS
     Route: 042
     Dates: start: 20230526, end: 20230926
  4. VINCRISTINE [Suspect]
     Active Substance: VINCRISTINE
     Dosage: 1 MG, EVERY 3 WEEKS
     Route: 042
     Dates: start: 20231017, end: 20231017
  5. DOXORUBICIN [Suspect]
     Active Substance: DOXORUBICIN
     Indication: Diffuse large B-cell lymphoma
     Dosage: 46.25 MG, EVERY 3 WEEKS
     Route: 042
     Dates: start: 20230526, end: 20231017
  6. PREDNISONE [Suspect]
     Active Substance: PREDNISONE
     Indication: Diffuse large B-cell lymphoma
     Dosage: 100 MG DAILY C1-6, DAY 1-5, EVERY 1 DAYS
     Route: 048
     Dates: start: 20230526, end: 20231021
  7. CYCLOPHOSPHAMIDE [Suspect]
     Active Substance: CYCLOPHOSPHAMIDE
     Indication: Diffuse large B-cell lymphoma
     Dosage: 693.75 MG, EVERY 3 WEEKS
     Route: 042
     Dates: start: 20230526, end: 20231017
  8. POLARAMINE [Concomitant]
     Active Substance: DEXCHLORPHENIRAMINE MALEATE
     Indication: Prophylaxis
     Dosage: 4 MG, 3/DAYS
     Route: 065
     Dates: start: 20230526
  9. OMEPRAZOL [OMEPRAZOLE SODIUM] [Concomitant]
     Indication: Prophylaxis
     Dosage: 20 MG, EVERY 1 DAYS
     Route: 065
     Dates: start: 20230614
  10. LEVOFLOXACIN [Concomitant]
     Active Substance: LEVOFLOXACIN
     Indication: Cytokine release syndrome
     Dosage: 500 MG, EVERY 1 DAYS
     Route: 065
     Dates: start: 20230615
  11. SULFAMETHOXAZOLE\TRIMETHOPRIM [Concomitant]
     Active Substance: SULFAMETHOXAZOLE\TRIMETHOPRIM
     Indication: Antifungal prophylaxis
     Dosage: 160/800 MG, 2/WEEKS
     Route: 065
     Dates: start: 20230615
  12. IRBESARTAN [Concomitant]
     Active Substance: IRBESARTAN
     Indication: Hypertension
     Dosage: 150 MG, EVERY 1 DAYS
     Route: 065
     Dates: start: 20220929
  13. ACETAMINOPHEN [Concomitant]
     Active Substance: ACETAMINOPHEN
     Indication: Rhinorrhoea
     Dosage: 1000 MG, 3/DAYS
     Route: 065
     Dates: start: 20230606

REACTIONS (5)
  - Herpes zoster [Fatal]
  - Subarachnoid haemorrhage [Recovered/Resolved]
  - Pneumonia [Not Recovered/Not Resolved]
  - Herpes zoster [Not Recovered/Not Resolved]
  - Product use issue [Unknown]

NARRATIVE: CASE EVENT DATE: 20231029
